FAERS Safety Report 6147425-4 (Version None)
Quarter: 2009Q2

REPORT INFORMATION
  Report Type: 
  Country: None (occurrence: None)
  Receive Date: 20090408
  Receipt Date: 20090407
  Transmission Date: 20091009
  Serious: Yes (Life-Threatening)
  Sender: FDA-Public Use
  Company Number: CA-ROXANE LABORATORIES, INC.-2009-RO-00348RO

PATIENT

DRUGS (1)
  1. METHADONE [Suspect]
     Indication: PAIN
     Dosage: 120MG
     Route: 048

REACTIONS (4)
  - MEDICATION ERROR [None]
  - OVERDOSE [None]
  - SOMNOLENCE [None]
  - VOMITING [None]
